FAERS Safety Report 8119842-4 (Version None)
Quarter: 2012Q1

REPORT INFORMATION
  Report Type: 
  Country: None (occurrence: None)
  Receive Date: 20120206
  Receipt Date: 20120206
  Transmission Date: 20120608
  Serious: Yes (Life-Threatening)
  Sender: FDA-Public Use
  Company Number: None

PATIENT
  Sex: Female
  Weight: 78.4723 kg

DRUGS (1)
  1. LOVASTATIN [Suspect]
     Indication: BLOOD CHOLESTEROL INCREASED
     Dosage: 20MG 1 TABLET AT BED
     Dates: start: 20111025, end: 20111125

REACTIONS (4)
  - RECTAL HAEMORRHAGE [None]
  - GASTROINTESTINAL MOTILITY DISORDER [None]
  - PALPITATIONS [None]
  - FLATULENCE [None]
